FAERS Safety Report 25225595 (Version 1)
Quarter: 2025Q2

REPORT INFORMATION
  Report Type: Spontaneous
  Country: AR (occurrence: AR)
  Receive Date: 20250422
  Receipt Date: 20250422
  Transmission Date: 20250717
  Serious: Yes (Other)
  Sender: SANDOZ
  Company Number: AR-002147023-NVSC2025AR064084

PATIENT
  Age: 62 Year
  Sex: Female

DRUGS (3)
  1. KISQALI [Suspect]
     Active Substance: RIBOCICLIB SUCCINATE
     Indication: Breast cancer metastatic
     Dosage: 600 MG, QD, (200MG 3 TABLETS ALL TOGETHER A DAY AT 2 IN THE AFTERNOON)
     Route: 048
     Dates: start: 20230911
  2. LETROZOLE [Suspect]
     Active Substance: LETROZOLE
     Indication: Breast cancer metastatic
     Dosage: 2.5 MG, QD, (1 TABLET AT 6 IN THE AFTERNOON)
     Route: 048
     Dates: start: 20230911
  3. ZOLEDRONIC ACID [Suspect]
     Active Substance: ZOLEDRONIC ACID
     Indication: Breast cancer metastatic
     Route: 042
     Dates: start: 20230911

REACTIONS (3)
  - Visual impairment [Unknown]
  - Cataract [Unknown]
  - Eye disorder [Unknown]

NARRATIVE: CASE EVENT DATE: 20240701
